FAERS Safety Report 17584288 (Version 1)
Quarter: 2020Q1

REPORT INFORMATION
  Report Type: Spontaneous
  Country: CA (occurrence: CA)
  Receive Date: 20200326
  Receipt Date: 20200326
  Transmission Date: 20200409
  Serious: Yes (Death, Other)
  Sender: FDA-Public Use
  Company Number: NVSC2020CA083690

PATIENT
  Age: 91 Year
  Sex: Female

DRUGS (2)
  1. PAMIDRONATE DISODIUM. [Suspect]
     Active Substance: PAMIDRONATE DISODIUM
     Indication: METASTASES TO BONE
     Dosage: UNK
     Route: 042
  2. ZOMETA [Suspect]
     Active Substance: ZOLEDRONIC ACID
     Indication: METASTASES TO BONE
     Dosage: 4 MG
     Route: 042

REACTIONS (15)
  - Cardiac failure [Fatal]
  - Vein disorder [Fatal]
  - Weight bearing difficulty [Fatal]
  - Hypokinesia [Fatal]
  - Lethargy [Fatal]
  - Breath sounds abnormal [Fatal]
  - Pneumonia [Fatal]
  - Tumour marker increased [Fatal]
  - Dementia [Fatal]
  - Hypophagia [Fatal]
  - Poor venous access [Fatal]
  - Depressed level of consciousness [Fatal]
  - Transient ischaemic attack [Fatal]
  - Confusional state [Fatal]
  - Dehydration [Fatal]
